FAERS Safety Report 4331761-8 (Version None)
Quarter: 2004Q2

REPORT INFORMATION
  Report Type: 
  Country: None (occurrence: None)
  Receive Date: 20040405
  Receipt Date: 20030620
  Transmission Date: 20050107
  Serious: No
  Sender: FDA-Public Use
  Company Number: US-GLAXOSMITHKLINE-A0413578A

PATIENT
  Sex: Female

DRUGS (2)
  1. FLOVENT [Suspect]
     Indication: ASTHMA
     Dosage: 220MCG TWICE PER DAY
     Route: 055
  2. ALBUTEROL [Concomitant]

REACTIONS (6)
  - ADRENAL SUPPRESSION [None]
  - BODY TEMPERATURE DECREASED [None]
  - FATIGUE [None]
  - FLUSHING [None]
  - HOARSENESS [None]
  - MUSCULAR WEAKNESS [None]
